FAERS Safety Report 11999328 (Version 1)
Quarter: 2016Q1

REPORT INFORMATION
  Report Type: Spontaneous
  Country: US (occurrence: None)
  Receive Date: 20160203
  Receipt Date: 20160203
  Transmission Date: 20160526
  Serious: Yes (Disabling)
  Sender: FDA-Public Use
  Company Number: None

PATIENT
  Age: 63 Year
  Sex: Female
  Weight: 67.59 kg

DRUGS (7)
  1. COPAXONE (INJECTABLE) [Concomitant]
  2. PRALUENT [Suspect]
     Active Substance: ALIROCUMAB
     Indication: DRUG HYPERSENSITIVITY
     Dosage: INJECTION EVERY 2 WEEKS INTO THE MUSCLE
     Route: 030
  3. MEDOPROLOL ER (PLAVIX) [Concomitant]
  4. IRON [Concomitant]
     Active Substance: IRON
  5. PRALUENT [Suspect]
     Active Substance: ALIROCUMAB
     Indication: LOW DENSITY LIPOPROTEIN INCREASED
     Dosage: INJECTION EVERY 2 WEEKS INTO THE MUSCLE
     Route: 030
  6. VIT. D, FOLIC ACID, VIT. B - COMPLEX [Concomitant]
     Active Substance: FOLIC ACID\VITAMINS
  7. MULTI-VIT [Concomitant]
     Active Substance: VITAMINS

REACTIONS (3)
  - Diarrhoea [None]
  - Nocturia [None]
  - Renal pain [None]

NARRATIVE: CASE EVENT DATE: 20160116
